FAERS Safety Report 19355451 (Version 2)
Quarter: 2021Q2

REPORT INFORMATION
  Report Type: Spontaneous
  Country: US (occurrence: US)
  Receive Date: 20210531
  Receipt Date: 20210601
  Transmission Date: 20210717
  Serious: Yes (Life-Threatening, Hospitalization, Other)
  Sender: FDA-Public Use
  Company Number: US-CELGENEUS-USA-20210507406

PATIENT
  Age: 63 Year
  Sex: Female

DRUGS (3)
  1. REVLIMID [Suspect]
     Active Substance: LENALIDOMIDE
     Indication: PLASMA CELL MYELOMA
     Route: 048
  2. CARFILZOMIB [Suspect]
     Active Substance: CARFILZOMIB
     Indication: PLASMA CELL MYELOMA
     Route: 065
  3. DEXAMETHASONE. [Suspect]
     Active Substance: DEXAMETHASONE
     Indication: PLASMA CELL MYELOMA
     Route: 065

REACTIONS (8)
  - Blood lactate dehydrogenase increased [Unknown]
  - Malignant pleural effusion [Not Recovered/Not Resolved]
  - Cough [Unknown]
  - Pancytopenia [Unknown]
  - Therapy partial responder [Unknown]
  - Hypoxia [Not Recovered/Not Resolved]
  - Dyspnoea [Unknown]
  - Plasma cell myeloma [Not Recovered/Not Resolved]
